FAERS Safety Report 5818390-1 (Version None)
Quarter: 2008Q3

REPORT INFORMATION
  Report Type: 
  Country: None (occurrence: None)
  Receive Date: 20080716
  Receipt Date: 20080701
  Transmission Date: 20090109
  Serious: Yes (Hospitalization, Other)
  Sender: FDA-Public Use
  Company Number: MEDI-0006723

PATIENT
  Age: 13 Month
  Sex: Male
  Weight: 8.25 kg

DRUGS (13)
  1. SYNAGIS [Suspect]
     Indication: ANTIVIRAL PROPHYLAXIS
     Dosage: 50 MG; 1.34 ML; 1.34 ML
     Dates: start: 20071115, end: 20071115
  2. SYNAGIS [Suspect]
     Indication: ANTIVIRAL PROPHYLAXIS
     Dosage: 50 MG; 1.34 ML; 1.34 ML
     Dates: start: 20080207
  3. SYNAGIS [Suspect]
     Indication: ANTIVIRAL PROPHYLAXIS
     Dosage: 50 MG; 1.34 ML; 1.34 ML
     Dates: start: 20080407
  4. OXYGEN (OXYGEN) [Concomitant]
  5. MONTELUKAST SODIUM [Concomitant]
  6. ACETAMINOPHEN [Concomitant]
  7. IBUPROFEN [Concomitant]
  8. VITAMIN K (MENADIONE) [Concomitant]
  9. NYSTATIN [Concomitant]
  10. CEFOTAXIME SODIUM [Concomitant]
  11. CEFUROXIME [Concomitant]
  12. EPINEPHRINE/ SALBUTAMOL/ NACL [Concomitant]
  13. INFUSION THERAPY (NICOTINIC ACID, ETHANOLAMINE, TRIMECAINE HYDROCHLORI [Concomitant]

REACTIONS (7)
  - BRONCHITIS CHRONIC [None]
  - DRUG INEFFECTIVE [None]
  - GASTROENTERITIS ROTAVIRUS [None]
  - GENERAL PHYSICAL HEALTH DETERIORATION [None]
  - PROTHROMBIN TIME PROLONGED [None]
  - RESPIRATORY SYNCYTIAL VIRUS BRONCHIOLITIS [None]
  - STAPHYLOCOCCAL INFECTION [None]
